FAERS Safety Report 20614064 (Version 2)
Quarter: 2022Q1

REPORT INFORMATION
  Report Type: Report from Study
  Country: IL (occurrence: CH)
  Receive Date: 20220320
  Receipt Date: 20220325
  Transmission Date: 20220423
  Serious: Yes (Hospitalization, Other)
  Sender: FDA-Public Use
  Company Number: IL-JNJFOC-20220321757

PATIENT

DRUGS (2)
  1. STELARA [Suspect]
     Active Substance: USTEKINUMAB
     Indication: Crohn^s disease
     Route: 058
  2. VEDOLIZUMAB [Suspect]
     Active Substance: VEDOLIZUMAB
     Route: 065

REACTIONS (9)
  - Depression [Unknown]
  - Cardiac failure [Unknown]
  - Anaemia [Unknown]
  - Arthralgia [Unknown]
  - Infusion related reaction [Unknown]
  - Infection [Unknown]
  - Psoriasis [Unknown]
  - Dermatitis [Unknown]
  - Drug ineffective [Unknown]
